FAERS Safety Report 9242884 (Version 3)
Quarter: 2014Q2

REPORT INFORMATION
  Report Type: Spontaneous
  Country: US (occurrence: US)
  Receive Date: 20130419
  Receipt Date: 20140415
  Transmission Date: 20141212
  Serious: Yes (Hospitalization)
  Sender: FDA-Public Use
  Company Number: US-B.I. PHARMACEUTICALS,INC./RIDGEFIELD-2013-BI-10153BP

PATIENT
  Age: 84 Year
  Sex: Female
  Weight: 52.62 kg

DRUGS (16)
  1. PRADAXA [Suspect]
     Indication: ATRIAL FIBRILLATION
     Dosage: 300 MG
     Route: 048
     Dates: start: 20111004, end: 20120406
  2. XARELTO [Suspect]
     Indication: PRODUCT USED FOR UNKNOWN INDICATION
     Dosage: 20 MG
     Route: 048
  3. ASPIRIN [Concomitant]
     Dosage: 81 MG
     Route: 065
  4. LOMOTIL [Concomitant]
     Route: 048
  5. DEPAKOTE SPRINKLES [Concomitant]
     Dosage: 125 MG
     Route: 048
  6. FLONASE [Concomitant]
     Route: 065
  7. MARPLAN [Concomitant]
     Dosage: 30 MG
     Route: 048
  8. IMDUR [Concomitant]
     Dosage: 3 MG
     Route: 065
  9. PREVACID [Concomitant]
     Dosage: 30 MG
     Route: 065
  10. COZAAR [Concomitant]
     Dosage: 25 MG
     Route: 065
  11. METOPROLOL TARTRATE [Concomitant]
     Dosage: 25 MG
     Route: 065
  12. MULTIVITAMIN [Concomitant]
     Route: 065
  13. NITROGLYCERIN [Concomitant]
     Route: 060
  14. POTASSIUM CHLORIDE [Concomitant]
     Dosage: 40 MEQ
     Route: 048
  15. CRESTOR [Concomitant]
     Dosage: 10 MG
     Route: 048
  16. AMBIEN [Concomitant]
     Route: 048

REACTIONS (2)
  - Thalamus haemorrhage [Unknown]
  - Haemorrhoidal haemorrhage [Unknown]
